FAERS Safety Report 8329335 (Version 3)
Quarter: 2012Q4

REPORT INFORMATION
  Report Type: 
  Country: US (occurrence: None)
  Receive Date: 20111230
  Receipt Date: 20120829
  Transmission Date: 20130627
  Serious: Yes (Death, Other)
  Sender: FDA-Public Use
  Company Number: TPA2011A08489

PATIENT
  Age: 78 Year
  Sex: Male
  Weight: 74.84 kg

DRUGS (10)
  1. ACTOS [Suspect]
     Indication: TYPE 2 DIABETES MELLITUS
     Dates: start: 201001
  2. ACTOS [Suspect]
     Indication: TYPE 2 DIABETES MELLITUS
     Dates: start: 201001
  3. ACTOS [Suspect]
     Indication: TYPE 2 DIABETES MELLITUS
     Dates: start: 200001, end: 201106
  4. ACTOS [Suspect]
     Indication: TYPE 2 DIABETES MELLITUS
     Dates: start: 200001, end: 201106
  5. METFORMIN [Concomitant]
  6. GLUCOPHAGE (METFORMIN) [Concomitant]
  7. HUMALOG (INSULIN) [Concomitant]
  8. NOVOLOG (INSULIN ASPART) [Concomitant]
  9. NOVOLIN (INSULIN) [Concomitant]
  10. INSULIN [Concomitant]

REACTIONS (1)
  - Bladder cancer [None]
